FAERS Safety Report 4341439-2 (Version None)
Quarter: 2004Q2

REPORT INFORMATION
  Report Type: 
  Country: None (occurrence: None)
  Receive Date: 20040414
  Receipt Date: 20040405
  Transmission Date: 20050107
  Serious: Yes (Life-Threatening, Hospitalization)
  Sender: FDA-Public Use
  Company Number: 2004-03-1984

PATIENT
  Age: 40 Year
  Sex: Male

DRUGS (3)
  1. CELESTONE [Suspect]
     Indication: ASTHMA
     Dosage: 2 ML INTRAMUSCULAR
     Route: 030
     Dates: start: 20040325, end: 20040325
  2. SALBUTAMOL SULPHATE [Concomitant]
  3. AZITHROMYCIN [Concomitant]

REACTIONS (2)
  - ANAPHYLACTIC SHOCK [None]
  - PROCEDURAL COMPLICATION [None]
